FAERS Safety Report 5400206-9 (Version None)
Quarter: 2007Q3

REPORT INFORMATION
  Report Type: 
  Country: None (occurrence: None)
  Receive Date: 20070725
  Receipt Date: 20070710
  Transmission Date: 20080115
  Serious: Yes (Hospitalization)
  Sender: FDA-Public Use
  Company Number: 2007-161105-NL

PATIENT
  Age: 33 Year
  Sex: Male

DRUGS (2)
  1. DANAPAROID [Suspect]
     Indication: HEPARIN-INDUCED THROMBOCYTOPENIA
     Dosage: 750 ANTI-XA TID
     Dates: start: 19980201, end: 19980201
  2. HEPARIN [Concomitant]

REACTIONS (14)
  - ADDISON'S DISEASE [None]
  - ADRENAL HAEMORRHAGE [None]
  - ANOREXIA [None]
  - ASTHENIA [None]
  - BACK PAIN [None]
  - CONFUSIONAL STATE [None]
  - DIARRHOEA [None]
  - INFLAMMATION [None]
  - INJECTION SITE ERYTHEMA [None]
  - INJECTION SITE PAIN [None]
  - NAUSEA [None]
  - PLATELET COUNT DECREASED [None]
  - SKIN REACTION [None]
  - VENOUS THROMBOSIS LIMB [None]
